FAERS Safety Report 21469937 (Version 1)
Quarter: 2022Q4

REPORT INFORMATION
  Report Type: Spontaneous
  Country: US (occurrence: US)
  Receive Date: 20221018
  Receipt Date: 20221018
  Transmission Date: 20230113
  Serious: Yes (Hospitalization, Other)
  Sender: FDA-Public Use
  Company Number: US-HETERO-HET2022US02569

PATIENT
  Age: 21 Year
  Sex: Male

DRUGS (12)
  1. ATOMOXETINE [Interacting]
     Active Substance: ATOMOXETINE
     Indication: Attention deficit hyperactivity disorder
     Dosage: 40 MG
     Route: 065
  2. ATOMOXETINE [Interacting]
     Active Substance: ATOMOXETINE
     Indication: Major depression
     Dosage: 60 MG DAILY (INCREASED 6 WEEKS BEFORE FIRST PRESENTATION)
     Route: 065
  3. ATOMOXETINE [Interacting]
     Active Substance: ATOMOXETINE
     Dosage: 40MG DAILY (3 MONTHS AFTER FIRST PRESENTATION)
     Route: 065
  4. BUPROPION HYDROCHLORIDE XL [Interacting]
     Active Substance: BUPROPION HYDROCHLORIDE
     Indication: Attention deficit hyperactivity disorder
     Dosage: 150 MG
     Route: 065
  5. BUPROPION HYDROCHLORIDE XL [Interacting]
     Active Substance: BUPROPION HYDROCHLORIDE
     Indication: Major depression
     Dosage: 300 MG DAILY (INCREASED 6 WEEKS BEFORE FIRST PRESENTATION)
     Route: 065
  6. QUETIAPINE [Concomitant]
     Active Substance: QUETIAPINE
     Indication: Insomnia
     Dosage: 100 MG, NIGHTLY
     Route: 065
  7. QUETIAPINE [Concomitant]
     Active Substance: QUETIAPINE
     Dosage: 200 MG NIGHTLY (3 MONTHS AFTER FIRST PRESENTATION)
     Route: 065
  8. QUETIAPINE [Concomitant]
     Active Substance: QUETIAPINE
     Dosage: 400 MG AT BEDTIME (INCREASED)
     Route: 065
  9. ALPRAZOLAM [Concomitant]
     Active Substance: ALPRAZOLAM
     Indication: Anxiety
     Dosage: 0.25 MG
     Route: 065
  10. DIVALPROEX SODIUM [Concomitant]
     Active Substance: DIVALPROEX SODIUM
     Indication: Product used for unknown indication
     Dosage: 1500 MG TOTAL DAILY DOSE
     Route: 065
  11. LORAZEPAM [Concomitant]
     Active Substance: LORAZEPAM
     Indication: Agitation
     Dosage: 1 MG EVERY 8 HOURS AS NEEDED
     Route: 065
  12. LORAZEPAM [Concomitant]
     Active Substance: LORAZEPAM
     Dosage: TAPERED DOWN TO 0.5 MG DAILY
     Route: 065

REACTIONS (5)
  - Toxicity to various agents [Recovered/Resolved]
  - Generalised tonic-clonic seizure [Recovered/Resolved]
  - Drug interaction [Recovered/Resolved]
  - Manic symptom [Recovered/Resolved]
  - Psychotic disorder [Recovered/Resolved]
